FAERS Safety Report 5503767-4 (Version None)
Quarter: 2007Q4

REPORT INFORMATION
  Report Type: 
  Country: None (occurrence: None)
  Receive Date: 20071030
  Receipt Date: 20071030
  Transmission Date: 20080405
  Serious: Yes (Other)
  Sender: FDA-Public Use
  Company Number: None

PATIENT
  Weight: 83.9154 kg

DRUGS (1)
  1. CARVEDILOL 3.125MG ZYGENERICS [Suspect]
     Indication: CARDIOMYOPATHY
     Dosage: 3.125 MG   TWICE DAILY PO
     Route: 048
     Dates: start: 20070929, end: 20071029

REACTIONS (7)
  - DIZZINESS [None]
  - FATIGUE [None]
  - LISTLESS [None]
  - PALPITATIONS [None]
  - PHARMACEUTICAL PRODUCT COMPLAINT [None]
  - SOMNOLENCE [None]
  - VISION BLURRED [None]
